FAERS Safety Report 19730403 (Version 2)
Quarter: 2021Q4

REPORT INFORMATION
  Report Type: Spontaneous
  Country: US (occurrence: US)
  Receive Date: 20210821
  Receipt Date: 20211029
  Transmission Date: 20220304
  Serious: No
  Sender: FDA-Public Use
  Company Number: US-DRREDDYS-SPO/USA/21/0139230

PATIENT
  Age: 65 Year
  Sex: Female

DRUGS (2)
  1. QUETIAPINE FUMARATE [Suspect]
     Active Substance: QUETIAPINE FUMARATE
     Indication: Bipolar I disorder
     Dosage: ARIPIPRAZOLE WAS CROSS-TITRATED WITH QUETIAPINE
     Dates: start: 202005, end: 202006
  2. QUETIAPINE FUMARATE [Suspect]
     Active Substance: QUETIAPINE FUMARATE
     Dosage: 300 MG QUETIAPINE NIGHTLY
     Dates: start: 202006, end: 202010

REACTIONS (1)
  - Burning mouth syndrome [Recovered/Resolved]

NARRATIVE: CASE EVENT DATE: 20200701
